FAERS Safety Report 9498339 (Version 1)
Quarter: 2013Q3

REPORT INFORMATION
  Report Type: Spontaneous
  Country: IN (occurrence: None)
  Receive Date: 20130830
  Receipt Date: 20130830
  Transmission Date: 20140515
  Serious: Yes (Hospitalization)
  Sender: FDA-Public Use
  Company Number: KAD201308-001065

PATIENT
  Age: 12 Year
  Sex: Male

DRUGS (7)
  1. AMPHOTERICIN B [Suspect]
  2. MEROPENEM [Suspect]
  3. LEVOFLOXACIN [Suspect]
  4. CEFEPIME [Suspect]
  5. AMIKACIN [Suspect]
  6. FLUCONAZOLE [Suspect]
  7. ETOPOSIDE [Suspect]
     Indication: CHEMOTHERAPY

REACTIONS (3)
  - Hypokalaemia [None]
  - Neutropenic colitis [None]
  - Intestinal obstruction [None]
